FAERS Safety Report 14797570 (Version 6)
Quarter: 2018Q3

REPORT INFORMATION
  Report Type: Report from Study
  Country: FR (occurrence: FR)
  Receive Date: 20180424
  Receipt Date: 20180810
  Transmission Date: 20181010
  Serious: Yes (Hospitalization)
  Sender: FDA-Public Use
  Company Number: FR-ROCHE-2106837

PATIENT
  Age: 78 Year
  Sex: Female

DRUGS (15)
  1. PEGYLATED LIPOSOMAL DOXORUBICIN [Suspect]
     Active Substance: DOXORUBICIN
     Indication: OVARIAN CANCER
     Dosage: D1 X 6 CYCLES EVERY 4 WEEK?ON 15/FEB/2018,  THE LAST DOSE OF PEGYLATED LIPOSOMAL DOXORUBICIN WAS REC
     Route: 042
     Dates: start: 20171110, end: 20180301
  2. COTAREG [Concomitant]
     Active Substance: HYDROCHLOROTHIAZIDE\VALSARTAN
  3. TRAMADOL. [Concomitant]
     Active Substance: TRAMADOL
  4. BEVACIZUMAB. [Suspect]
     Active Substance: BEVACIZUMAB
     Indication: OVARIAN CANCER
     Dosage: D1 AND D15 X 6 CYCLES EVERY 4 WEEK?ON 15/FEB/2018,  THE LAST DOSE OF BEVACIZUMAB WAS RECEIVED PRIOR
     Route: 042
     Dates: start: 20171110, end: 20180301
  5. DOLIPRANE [Concomitant]
     Active Substance: ACETAMINOPHEN
  6. TAHOR [Concomitant]
     Active Substance: ATORVASTATIN CALCIUM
     Route: 065
  7. CARBOPLATIN. [Suspect]
     Active Substance: CARBOPLATIN
     Indication: OVARIAN CANCER
     Dosage: AUC=5, D1X6 CYCLE EVERY 4 WEEK?ON 15/FEB/2018,  THE LAST DOSE OF CARBOPLATIN WAS RECEIVED PRIOR TO A
     Route: 042
     Dates: start: 20171110, end: 20180301
  8. TOPALGIC (FRANCE) [Concomitant]
     Active Substance: TRAMADOL HYDROCHLORIDE
  9. LEVOTHYROX [Concomitant]
     Active Substance: LEVOTHYROXINE
  10. LAROSCORBINE [Concomitant]
     Active Substance: ASCORBIC ACID
  11. TAHOR [Concomitant]
     Active Substance: ATORVASTATIN CALCIUM
     Route: 065
  12. BLINDED ATEZOLIZUMAB [Suspect]
     Active Substance: ATEZOLIZUMAB
     Indication: OVARIAN CANCER
     Dosage: D1 AND D15X6 CYCLES EVERY 4 WEEK?ON 15/FEB/2018, THE LAST DOSE OF ATEZOLIZUMAB WAS RECEIVED PRIOR TO
     Route: 042
     Dates: start: 20171110, end: 20180301
  13. KARDEGIC [Concomitant]
     Active Substance: ASPIRIN DL-LYSINE
  14. FORTIMEL [Concomitant]
     Active Substance: DIETARY SUPPLEMENT
  15. ATORVASTATINE [Concomitant]
     Active Substance: ATORVASTATIN

REACTIONS (3)
  - Skin ulcer [Not Recovered/Not Resolved]
  - Impaired healing [Not Recovered/Not Resolved]
  - Pyoderma gangrenosum [Not Recovered/Not Resolved]

NARRATIVE: CASE EVENT DATE: 20180301
